FAERS Safety Report 23287930 (Version 1)
Quarter: 2023Q4

REPORT INFORMATION
  Report Type: Spontaneous
  Country: AT (occurrence: AT)
  Receive Date: 20231212
  Receipt Date: 20231212
  Transmission Date: 20240110
  Serious: Yes (Hospitalization, Other)
  Sender: FDA-Public Use
  Company Number: AT-PFM-2023-06902

PATIENT
  Age: 39 Year
  Sex: Male
  Weight: 80 kg

DRUGS (4)
  1. NIVOLUMAB [Suspect]
     Active Substance: NIVOLUMAB
     Indication: Product used for unknown indication
     Dosage: UNK
  2. IPILIMUMAB [Suspect]
     Active Substance: IPILIMUMAB
     Indication: Product used for unknown indication
     Dosage: UNK
  3. ENCORAFENIB [Suspect]
     Active Substance: ENCORAFENIB
     Indication: Malignant melanoma
     Dosage: UNK
  4. BINIMETINIB [Suspect]
     Active Substance: BINIMETINIB
     Indication: Malignant melanoma
     Dosage: UNK

REACTIONS (14)
  - Fatigue [Unknown]
  - Abdominal pain [Unknown]
  - Treatment noncompliance [Unknown]
  - Hypothyroidism [Unknown]
  - Pain [Unknown]
  - General physical health deterioration [Unknown]
  - Hypophysitis [Unknown]
  - Hepatitis [Unknown]
  - Acute kidney injury [Unknown]
  - Pain [Unknown]
  - Sepsis [Unknown]
  - Dyspnoea [Unknown]
  - Cold sweat [Unknown]
  - Tachycardia [Unknown]
